FAERS Safety Report 6782416-1 (Version None)
Quarter: 2010Q2

REPORT INFORMATION
  Report Type: 
  Country: None (occurrence: None)
  Receive Date: 20100621
  Receipt Date: 20100616
  Transmission Date: 20101027
  Serious: Yes (Death)
  Sender: FDA-Public Use
  Company Number: US-CEPHALON-2010003275

PATIENT
  Sex: Male

DRUGS (10)
  1. TREANDA [Suspect]
     Indication: MULTIPLE MYELOMA
     Route: 041
     Dates: start: 20100329, end: 20100330
  2. MARINOL [Concomitant]
  3. IMMUNE GLOBULIN INTRAVENOUS (HUMAN) [Concomitant]
     Dates: end: 20100318
  4. VICODIN [Concomitant]
     Indication: PAIN
  5. WARFARIN [Concomitant]
     Dosage: 2-5MG
  6. PAMIDRONATE DISODIUM [Concomitant]
  7. ACYCLOVIR [Concomitant]
  8. SPIRIVA [Concomitant]
  9. ALBUTEROL [Concomitant]
  10. ZOLPIDEM TARTRATE [Concomitant]

REACTIONS (1)
  - DEATH [None]
